FAERS Safety Report 11445662 (Version 1)
Quarter: 2015Q3

REPORT INFORMATION
  Report Type: Spontaneous
  Country: US (occurrence: None)
  Receive Date: 20150826
  Receipt Date: 20150826
  Transmission Date: 20151125
  Serious: Yes (Other)
  Sender: FDA-Public Use
  Company Number: PHEH2014US013103

PATIENT
  Age: 61 Year
  Sex: Female

DRUGS (5)
  1. MULTIVITAMIN/VITAMINS NOS [Concomitant]
  2. D3 (COLECALCIFEROL) [Concomitant]
  3. MAGNESIUM (MAGNESIUM) [Suspect]
     Active Substance: MAGNESIUM
  4. SANDOSTATIN LAR DEPOT [Suspect]
     Active Substance: OCTREOTIDE ACETATE
     Indication: PITUITARY TUMOUR
     Dates: start: 2011
  5. CALCIUM [Concomitant]
     Active Substance: CALCIUM

REACTIONS (2)
  - Aneurysm [None]
  - Constipation [None]
